FAERS Safety Report 4813428-2 (Version None)
Quarter: 2005Q4

REPORT INFORMATION
  Report Type: 
  Country: None (occurrence: None)
  Receive Date: 20051026
  Receipt Date: 20051012
  Transmission Date: 20060501
  Serious: Yes (Other)
  Sender: FDA-Public Use
  Company Number: USA0510110613

PATIENT
  Age: 57 Year
  Sex: Male

DRUGS (4)
  1. HUMULIN R [Suspect]
     Dates: end: 20050701
  2. HUMULIN U [Suspect]
     Dates: end: 20050701
  3. HUMALOG [Suspect]
     Dates: start: 20050701
  4. LANTUS [Concomitant]

REACTIONS (8)
  - BLINDNESS UNILATERAL [None]
  - BLOOD GLUCOSE FLUCTUATION [None]
  - DIABETIC RETINOPATHY [None]
  - RETINAL DETACHMENT [None]
  - SHOCK HYPOGLYCAEMIC [None]
  - SPEECH DISORDER [None]
  - THINKING ABNORMAL [None]
  - VISUAL ACUITY REDUCED [None]
